FAERS Safety Report 7576435-5 (Version None)
Quarter: 2011Q2

REPORT INFORMATION
  Report Type: 
  Country: None (occurrence: None)
  Receive Date: 20110628
  Receipt Date: 20110505
  Transmission Date: 20111010
  Serious: No
  Sender: FDA-Public Use
  Company Number: US-BAYER-2011-040583

PATIENT
  Sex: Male

DRUGS (2)
  1. VICODIN [Concomitant]
     Dosage: 3 DF, QD
  2. ALEVE (CAPLET) [Suspect]
     Indication: ARTHRALGIA
     Dosage: 4 DF, OM
     Route: 048

REACTIONS (1)
  - NO ADVERSE EVENT [None]
